FAERS Safety Report 6642693-4 (Version None)
Quarter: 2010Q1

REPORT INFORMATION
  Report Type: 
  Country: None (occurrence: None)
  Receive Date: 20100316
  Receipt Date: 20100310
  Transmission Date: 20100710
  Serious: Yes (Death, Other)
  Sender: FDA-Public Use
  Company Number: 2009US002535

PATIENT
  Age: 66 Year
  Sex: Female

DRUGS (2)
  1. AMEVIVE [Suspect]
     Indication: PSORIASIS
     Dosage: 15 MG, WEEKLY, INTRAMUSCULAR
     Route: 030
  2. INFLIXIMAB (INFLIXIMAB) [Suspect]
     Indication: PSORIASIS
     Dosage: 100 MG, WEEKLY

REACTIONS (13)
  - ABDOMINAL PAIN UPPER [None]
  - ADRENAL MASS [None]
  - CARDIO-RESPIRATORY ARREST [None]
  - CHILLS [None]
  - COMA [None]
  - CONVULSION [None]
  - HAEMORRHAGE [None]
  - HYPERHIDROSIS [None]
  - LYMPHADENOPATHY [None]
  - NOCARDIOSIS [None]
  - RENAL VEIN THROMBOSIS [None]
  - SPLENIC INFECTION [None]
  - TREATMENT FAILURE [None]
